FAERS Safety Report 5965381-6 (Version None)
Quarter: 2008Q4

REPORT INFORMATION
  Report Type: 
  Country: None (occurrence: None)
  Receive Date: 20081124
  Receipt Date: 20081124
  Transmission Date: 20090506
  Serious: No
  Sender: FDA-Public Use
  Company Number: None

PATIENT
  Age: 81 Year
  Sex: Male
  Weight: 102.0593 kg

DRUGS (1)
  1. LIPITOR [Suspect]
     Dosage: 20MG 1 TIME DAILY/BEDTI
     Dates: start: 20050101, end: 20081120

REACTIONS (1)
  - RHABDOMYOLYSIS [None]
